FAERS Safety Report 16827703 (Version 1)
Quarter: 2019Q3

REPORT INFORMATION
  Report Type: Spontaneous
  Country: US (occurrence: US)
  Receive Date: 20190729
  Receipt Date: 20190729
  Transmission Date: 20191005
  Serious: No
  Sender: FDA-Public Use
  Company Number: None

PATIENT
  Age: 70 Year
  Sex: Male

DRUGS (1)
  1. GLATIRAMER 40MG PFS INJ (12/BOX) [Suspect]
     Active Substance: GLATIRAMER
     Dosage: ?          OTHER FREQUENCY:OTHER;?
     Route: 058
     Dates: start: 201903, end: 201907

REACTIONS (7)
  - Palpitations [None]
  - Confusional state [None]
  - Brain oedema [None]
  - Dyspnoea [None]
  - Blood pressure increased [None]
  - Musculoskeletal pain [None]
  - Oedema peripheral [None]

NARRATIVE: CASE EVENT DATE: 20190717
